FAERS Safety Report 13577226 (Version 1)
Quarter: 2017Q2

REPORT INFORMATION
  Report Type: Spontaneous
  Country: JP (occurrence: JP)
  Receive Date: 20170524
  Receipt Date: 20170524
  Transmission Date: 20170830
  Serious: Yes (Other)
  Sender: FDA-Public Use
  Company Number: JP-PFIZER INC-2017227499

PATIENT

DRUGS (2)
  1. ZYVOX [Suspect]
     Active Substance: LINEZOLID
     Dosage: UNK
  2. CEFAZOLIN [Concomitant]
     Active Substance: CEFAZOLIN
     Dosage: UNK

REACTIONS (1)
  - Enterocolitis haemorrhagic [Unknown]
